FAERS Safety Report 4291649-8 (Version None)
Quarter: 2004Q1

REPORT INFORMATION
  Report Type: 
  Country: None (occurrence: None)
  Receive Date: 20040211
  Receipt Date: 20031119
  Transmission Date: 20041129
  Serious: No
  Sender: FDA-Public Use
  Company Number: US-GLAXOSMITHKLINE-A0440369A

PATIENT
  Age: 67 Year
  Sex: Male

DRUGS (2)
  1. IMITREX [Suspect]
     Indication: HEADACHE
     Route: 058
     Dates: start: 19920101
  2. INDERAL [Suspect]

REACTIONS (2)
  - DRUG INEFFECTIVE [None]
  - FATIGUE [None]
